FAERS Safety Report 8231477-1 (Version None)
Quarter: 2012Q1

REPORT INFORMATION
  Report Type: 
  Country: None (occurrence: None)
  Receive Date: 20120323
  Receipt Date: 20120314
  Transmission Date: 20120608
  Serious: Yes (Hospitalization)
  Sender: FDA-Public Use
  Company Number: GB-GILEAD-2012-0049557

PATIENT
  Sex: Female

DRUGS (9)
  1. LANSOPRAZOLE [Concomitant]
     Route: 048
  2. AMBRISENTAN [Suspect]
     Indication: PULMONARY ARTERIAL HYPERTENSION
     Dosage: 2.5MG PER DAY
     Route: 048
     Dates: start: 20111117
  3. SPIRIVA [Concomitant]
     Route: 055
  4. REVATIO [Concomitant]
     Indication: PULMONARY ARTERIAL HYPERTENSION
     Dosage: 40MG PER DAY
     Route: 048
     Dates: start: 20100331
  5. AMBRISENTAN [Suspect]
     Dosage: 1.25 MG, UNK
     Route: 048
     Dates: start: 20111121, end: 20111122
  6. FUROSEMIDE [Concomitant]
     Indication: CARDIAC FAILURE
     Dosage: 40MG PER DAY
     Route: 048
     Dates: start: 20100201
  7. ALDACTONE [Concomitant]
     Indication: CARDIAC FAILURE
     Dosage: 50MG PER DAY
     Route: 048
     Dates: start: 20100201
  8. PAXIL [Concomitant]
     Route: 048
  9. MUCODYNE [Concomitant]
     Route: 048

REACTIONS (3)
  - OXYGEN SATURATION DECREASED [None]
  - PALPITATIONS [None]
  - DYSPNOEA [None]
